FAERS Safety Report 9258303 (Version 1)
Quarter: 2013Q2

REPORT INFORMATION
  Report Type: Spontaneous
  Country: BR (occurrence: BR)
  Receive Date: 20130426
  Receipt Date: 20130426
  Transmission Date: 20140414
  Serious: Yes (Hospitalization)
  Sender: FDA-Public Use
  Company Number: BR-PFIZER INC-2013129683

PATIENT
  Age: 65 Year
  Sex: Male

DRUGS (6)
  1. NORVASC [Suspect]
     Dosage: 1 TABLET STRENGTH 10MG PER DAY
     Route: 048
     Dates: start: 20100423
  2. SELOZOK [Concomitant]
  3. DIOVAN [Concomitant]
  4. PLAVIX [Concomitant]
  5. SUSTRATE [Concomitant]
  6. VASTAREL [Concomitant]

REACTIONS (1)
  - Infarction [Unknown]
